FAERS Safety Report 8919303 (Version 2)
Quarter: 2012Q4

REPORT INFORMATION
  Report Type: 
  Country: US (occurrence: US)
  Receive Date: 20121121
  Receipt Date: 20121221
  Transmission Date: 20130627
  Serious: Yes (Other)
  Sender: FDA-Public Use
  Company Number: US-PFIZER INC-2012287035

PATIENT
  Age: 59 Year
  Sex: Female

DRUGS (1)
  1. PREMPRO [Suspect]
     Dosage: 3/1.5 tab, 1x/day

REACTIONS (4)
  - Cerebral haemangioma [Unknown]
  - Hyperacusis [Unknown]
  - Balance disorder [Unknown]
  - Migraine [Unknown]
